FAERS Safety Report 8901633 (Version 1)
Quarter: 2012Q4

REPORT INFORMATION
  Report Type: Spontaneous
  Country: US (occurrence: None)
  Receive Date: 20121108
  Receipt Date: 20121108
  Transmission Date: 20130627
  Serious: Yes (Life-Threatening, Other)
  Sender: FDA-Public Use
  Company Number: None

PATIENT
  Age: 20 Year
  Sex: Female
  Weight: 86.18 kg

DRUGS (1)
  1. TRI-PREVIFEM [Suspect]
     Indication: BIRTH CONTROL
     Route: 048
     Dates: start: 20120801, end: 20121107

REACTIONS (1)
  - Blood glucose increased [None]
